FAERS Safety Report 5002959-0 (Version None)
Quarter: 2006Q2

REPORT INFORMATION
  Report Type: 
  Country: None (occurrence: None)
  Receive Date: 20060516
  Receipt Date: 20060511
  Transmission Date: 20061013
  Serious: Yes (Other)
  Sender: FDA-Public Use
  Company Number: 2006008567

PATIENT
  Age: 68 Year
  Sex: Female
  Weight: 70 kg

DRUGS (3)
  1. QUILONUM RETARD [Suspect]
     Route: 048
     Dates: start: 20060511, end: 20060511
  2. RISPERDAL [Suspect]
     Route: 048
     Dates: start: 20060511, end: 20060511
  3. ZYPREXA [Suspect]
     Route: 048
     Dates: start: 20060511, end: 20060511

REACTIONS (2)
  - NO ADVERSE DRUG EFFECT [None]
  - SUICIDE ATTEMPT [None]
